FAERS Safety Report 10085221 (Version 2)
Quarter: 2014Q2

REPORT INFORMATION
  Report Type: Spontaneous
  Country: US (occurrence: US)
  Receive Date: 20140417
  Receipt Date: 20140417
  Transmission Date: 20141212
  Serious: Yes (Other)
  Sender: FDA-Public Use
  Company Number: US-GE HEALTHCARE MEDICAL DIAGNOSTICS-VISP-PR-1402S-0087

PATIENT
  Age: 49 Year
  Sex: Male
  Weight: 89.89 kg

DRUGS (2)
  1. VISIPAQUE [Suspect]
     Indication: MALIGNANT MELANOMA
     Route: 042
     Dates: start: 20140226, end: 20140226
  2. VISIPAQUE [Suspect]
     Indication: DIAGNOSTIC PROCEDURE

REACTIONS (1)
  - Urticaria [Recovered/Resolved]
